FAERS Safety Report 6171032-0 (Version None)
Quarter: 2009Q2

REPORT INFORMATION
  Report Type: 
  Country: None (occurrence: None)
  Receive Date: 20090429
  Receipt Date: 20090423
  Transmission Date: 20091009
  Serious: No
  Sender: FDA-Public Use
  Company Number: US-JNJFOC-20090406484

PATIENT
  Sex: Male
  Weight: 77.11 kg

DRUGS (3)
  1. DURAGESIC-100 [Suspect]
     Indication: PAIN
     Route: 062
  2. MORPHINE SULFATE [Concomitant]
     Indication: PAIN
     Route: 048
  3. ANTIDEPRESSANTS [Concomitant]
     Indication: SLEEP DISORDER
     Route: 048

REACTIONS (2)
  - DRUG ADMINISTERED AT INAPPROPRIATE SITE [None]
  - INCORRECT DRUG ADMINISTRATION DURATION [None]
